FAERS Safety Report 23720104 (Version 1)
Quarter: 2024Q2

REPORT INFORMATION
  Report Type: Spontaneous
  Country: CN (occurrence: CN)
  Receive Date: 20240408
  Receipt Date: 20240408
  Transmission Date: 20240715
  Serious: Yes (Hospitalization, Other)
  Sender: FDA-Public Use
  Company Number: CN-HUTCHMED LIMITED-HMP2024CN00727

PATIENT
  Age: 73 Year
  Sex: Male
  Weight: 55 kg

DRUGS (1)
  1. FRUQUINTINIB [Suspect]
     Active Substance: FRUQUINTINIB
     Indication: Small intestine carcinoma
     Dosage: 4 MILLIGRAM, QD
     Route: 048
     Dates: start: 20231215, end: 20240104

REACTIONS (2)
  - Hepatic function abnormal [Recovering/Resolving]
  - Ammonia increased [Unknown]

NARRATIVE: CASE EVENT DATE: 20231227
